FAERS Safety Report 9159878 (Version 1)
Quarter: 2013Q1

REPORT INFORMATION
  Report Type: Spontaneous
  Country: US (occurrence: US)
  Receive Date: 20130313
  Receipt Date: 20130313
  Transmission Date: 20140127
  Serious: Yes (Other)
  Sender: FDA-Public Use
  Company Number: US-BAYER-2013-028723

PATIENT
  Age: 66 Year
  Sex: Female
  Weight: 59 kg

DRUGS (3)
  1. ASP SEVERE SINUS CONGESTION AND COUGH DAY AND NIGHT LG [Suspect]
     Dosage: 2 DF, ONCE
     Route: 048
     Dates: start: 20130225, end: 20130225
  2. RESTASIS [Concomitant]
  3. ALEVE GELCAP [Concomitant]
     Indication: BACK PAIN

REACTIONS (9)
  - Pulmonary congestion [Not Recovered/Not Resolved]
  - Nasal obstruction [Recovered/Resolved]
  - Insomnia [Recovered/Resolved]
  - Dysphonia [Recovered/Resolved]
  - Cough [Not Recovered/Not Resolved]
  - Decreased appetite [Not Recovered/Not Resolved]
  - Drug ineffective [Not Recovered/Not Resolved]
  - Oropharyngeal pain [Not Recovered/Not Resolved]
  - Productive cough [Not Recovered/Not Resolved]
